FAERS Safety Report 7340127-8 (Version None)
Quarter: 2011Q1

REPORT INFORMATION
  Report Type: 
  Country: None (occurrence: None)
  Receive Date: 20110309
  Receipt Date: 20110304
  Transmission Date: 20110831
  Serious: Yes (Other)
  Sender: FDA-Public Use
  Company Number: US-AMGEN-USASP2011010519

PATIENT
  Age: 68 Year
  Sex: Female
  Weight: 82.993 kg

DRUGS (2)
  1. CORTICOSTEROIDS [Concomitant]
     Dosage: UNK
     Dates: start: 20070323
  2. NPLATE [Suspect]
     Indication: IDIOPATHIC THROMBOCYTOPENIC PURPURA
     Dosage: 2 A?G/KG, UNK
     Route: 058
     Dates: start: 20100901, end: 20110124

REACTIONS (1)
  - THERAPEUTIC RESPONSE DECREASED [None]
